FAERS Safety Report 18630734 (Version 1)
Quarter: 2020Q4

REPORT INFORMATION
  Report Type: Spontaneous
  Country: KR (occurrence: KR)
  Receive Date: 20201217
  Receipt Date: 20201217
  Transmission Date: 20210114
  Serious: Yes (Death)
  Sender: FDA-Public Use
  Company Number: KR-GILEAD-2020-0509629

PATIENT
  Sex: Female

DRUGS (3)
  1. LEVOCACIN [Concomitant]
     Dosage: UNK
     Dates: start: 20201208, end: 20201213
  2. VEKLURY [Suspect]
     Active Substance: REMDESIVIR
     Indication: COVID-19
     Dosage: 200 MG 4:00 PM
     Route: 042
     Dates: start: 20201210
  3. VEKLURY [Suspect]
     Active Substance: REMDESIVIR
     Dosage: 100 MG
     Route: 042
     Dates: start: 20201211, end: 20201213

REACTIONS (1)
  - Dyspnoea [Fatal]
